FAERS Safety Report 5246446-3 (Version None)
Quarter: 2007Q1

REPORT INFORMATION
  Report Type: 
  Country: None (occurrence: None)
  Receive Date: 20070226
  Receipt Date: 20070215
  Transmission Date: 20070707
  Serious: Yes (Hospitalization)
  Sender: FDA-Public Use
  Company Number: FR-AVENTIS-200621465GDDC

PATIENT
  Age: 54 Year
  Sex: Female

DRUGS (9)
  1. OTHER ANTINEOPLASTIC AGENTS [Suspect]
     Route: 042
     Dates: start: 20060516, end: 20061009
  2. OTHER ANTINEOPLASTIC AGENTS [Suspect]
  3. TAXOTERE [Suspect]
     Route: 042
     Dates: start: 20060816, end: 20060816
  4. CISPLATIN [Suspect]
     Route: 042
     Dates: start: 20060816, end: 20060816
  5. FLUDEX                             /00340101/ [Suspect]
     Indication: HYPERTENSION
     Dosage: DOSE: UNK
     Dates: start: 20061023
  6. AMLODIPINE [Concomitant]
     Indication: HYPERTENSION
     Dosage: DOSE: UNK
     Dates: start: 20061016, end: 20061023
  7. TETRAZEPAM [Concomitant]
     Route: 048
     Dates: start: 20061009, end: 20061001
  8. DEXTROPROPOXYPHENE [Concomitant]
     Dosage: DOSE: UNK
     Route: 048
     Dates: start: 20061009, end: 20061001
  9. PARACETAMOL [Concomitant]
     Route: 048
     Dates: start: 20061009

REACTIONS (1)
  - THROMBOTIC MICROANGIOPATHY [None]
